FAERS Safety Report 14948768 (Version 1)
Quarter: 2018Q2

REPORT INFORMATION
  Report Type: Spontaneous
  Country: US (occurrence: US)
  Receive Date: 20180529
  Receipt Date: 20180529
  Transmission Date: 20180711
  Serious: No
  Sender: FDA-Public Use
  Company Number: US-LEXICON PHARMACEUTICALS, INC-18-1606-00527

PATIENT
  Sex: Male

DRUGS (7)
  1. OCTREOTIDE. [Concomitant]
     Active Substance: OCTREOTIDE
  2. TELOTRISTAT ETHYL [Suspect]
     Active Substance: TELOTRISTAT ETHYL
     Indication: CARCINOID SYNDROME
     Route: 048
     Dates: start: 20180109
  3. ALLOPURINOL. [Concomitant]
     Active Substance: ALLOPURINOL
  4. IBUPROFEN. [Concomitant]
     Active Substance: IBUPROFEN
  5. AMLODIPINE [Concomitant]
     Active Substance: AMLODIPINE BESYLATE
  6. LOSARTAN. [Concomitant]
     Active Substance: LOSARTAN
  7. NORCO [Concomitant]
     Active Substance: ACETAMINOPHEN\HYDROCODONE BITARTRATE

REACTIONS (1)
  - Intentional product misuse [Unknown]

NARRATIVE: CASE EVENT DATE: 2018
